FAERS Safety Report 22168670 (Version 4)
Quarter: 2023Q2

REPORT INFORMATION
  Report Type: Report from Study
  Country: US (occurrence: US)
  Receive Date: 20230403
  Receipt Date: 20230419
  Transmission Date: 20230721
  Serious: Yes (Other)
  Sender: FDA-Public Use
  Company Number: US-002147023-NVSC2023US071716

PATIENT
  Sex: Female
  Weight: 73 kg

DRUGS (15)
  1. COSENTYX [Suspect]
     Active Substance: SECUKINUMAB
     Indication: Dermatitis psoriasiform
     Dosage: 300 MG, QMO (2 PENS, UNDER THE SKIN, DISPENSE QUANTITY 2ML, 11 REFILL)
     Route: 058
     Dates: start: 20230320
  2. ALBUTEROL SULFATE [Concomitant]
     Active Substance: ALBUTEROL SULFATE
     Indication: Product used for unknown indication
     Dosage: 2 DOSAGE FORM, Q4H (8G, 2 PUFFS, PRN, 1 REFILL ORDERED)
     Dates: start: 20230317
  3. LIPITOR [Concomitant]
     Active Substance: ATORVASTATIN CALCIUM
     Indication: Product used for unknown indication
     Dosage: 10 MG, QD (90 TABLETS, 1 REFILL ORDERED)
     Route: 048
     Dates: start: 20221014
  4. TEMOVATE [Concomitant]
     Active Substance: CLOBETASOL PROPIONATE
     Indication: Product used for unknown indication
     Dosage: UNK (EXTERNAL SOLUTION, 50 ML, 3 REFILLS ORDERED)
     Route: 065
     Dates: start: 20220912
  5. TEMOVATE [Concomitant]
     Active Substance: CLOBETASOL PROPIONATE
     Dosage: UNK (OINTMENT, 60 G, 3 REFILLS ORDERED)
     Route: 065
     Dates: start: 20220912
  6. VOLTAREN [Concomitant]
     Active Substance: DICLOFENAC SODIUM
     Indication: Product used for unknown indication
     Dosage: 4 G (4 TIMES A DAY, 100 G DISPENSED, 3 REFILLS ORDERED)
     Route: 061
     Dates: start: 20230125
  7. DRISDOL [Concomitant]
     Active Substance: ERGOCALCIFEROL
     Indication: Product used for unknown indication
     Dosage: 1250 UG, QW (4 CAPSULES DISPENSED, 11 REFILLS ORDERED)
     Route: 048
     Dates: start: 20221230
  8. NEXIUM [Concomitant]
     Active Substance: ESOMEPRAZOLE MAGNESIUM
     Indication: Product used for unknown indication
     Dosage: 20 MG, QD (PRN)
     Route: 048
  9. FLONASE [Concomitant]
     Active Substance: FLUTICASONE PROPIONATE
     Indication: Product used for unknown indication
     Dosage: UNK (1 BOTTLE DISPENSED, 2 REFILLS ORDERED)
     Route: 065
     Dates: start: 20200528
  10. VYVANSE [Concomitant]
     Active Substance: LISDEXAMFETAMINE DIMESYLATE
     Indication: Product used for unknown indication
     Dosage: 30 MG, QD (EVERY MORNING, 30 CAPSULES, 0 REFILLS ORDERED)
     Route: 048
     Dates: start: 20230318
  11. TAB A VITE [Concomitant]
     Indication: Product used for unknown indication
     Dosage: 1 DOSAGE FORM, QD
     Route: 048
  12. VITAMINS [Concomitant]
     Active Substance: VITAMINS
     Indication: Product used for unknown indication
     Dosage: 1 DOSAGE FORM, QD
     Route: 048
  13. TRILEPTAL [Concomitant]
     Active Substance: OXCARBAZEPINE
     Indication: Product used for unknown indication
     Dosage: 150 MG, BID
     Route: 048
  14. PROTOPIC [Concomitant]
     Active Substance: TACROLIMUS
     Indication: Product used for unknown indication
     Dosage: UNK (100 G DISPENSED, 0 REFILL ORDERED)
     Route: 065
  15. KENALOG [Concomitant]
     Active Substance: TRIAMCINOLONE ACETONIDE
     Indication: Product used for unknown indication
     Dosage: UNK, BID (PRN, TAKING DIFFERENTLY, 80 G DISPENSED, 5 REFILL ORDERED)
     Route: 061
     Dates: start: 20220912

REACTIONS (2)
  - Multiple sclerosis [Unknown]
  - Product use in unapproved indication [Unknown]
